FAERS Safety Report 4814637-9 (Version None)
Quarter: 2005Q4

REPORT INFORMATION
  Report Type: 
  Country: None (occurrence: None)
  Receive Date: 20051028
  Receipt Date: 20041213
  Transmission Date: 20060501
  Serious: No
  Sender: FDA-Public Use
  Company Number: US-GLAXOSMITHKLINE-A0537066A

PATIENT
  Age: 60 Year
  Sex: Female

DRUGS (8)
  1. ADVAIR DISKUS 100/50 [Suspect]
     Indication: BRONCHITIS
     Dosage: 1PUFF TWICE PER DAY
     Route: 055
     Dates: start: 20041025, end: 20041122
  2. ASCORBIC ACID [Concomitant]
  3. ZETIA [Concomitant]
  4. THERMOGRAM [Concomitant]
  5. CALCIUM D [Concomitant]
  6. ASPIRIN [Concomitant]
  7. GARLIC [Concomitant]
  8. FISH OIL [Concomitant]

REACTIONS (1)
  - DRUG INEFFECTIVE [None]
